FAERS Safety Report 16023283 (Version 1)
Quarter: 2019Q1

REPORT INFORMATION
  Report Type: Spontaneous
  Country: GB (occurrence: GB)
  Receive Date: 20190301
  Receipt Date: 20190301
  Transmission Date: 20190418
  Serious: Yes (Hospitalization, Disabling, Other)
  Sender: FDA-Public Use
  Company Number: GB-ASTRAZENECA-2019SE31052

PATIENT
  Age: 30 Year
  Sex: Female

DRUGS (2)
  1. QUETIAPINE. [Suspect]
     Active Substance: QUETIAPINE
     Indication: ACUTE PSYCHOSIS
     Dosage: 25MG TWICE DAY 1 WEEK THEN 50MG TWICE DAY.
     Route: 048
     Dates: start: 20190131, end: 20190204
  2. RISPERIDONE. [Suspect]
     Active Substance: RISPERIDONE
     Indication: ACUTE PSYCHOSIS
     Dosage: 2MG ONCE DAILY INCREASED UP TO 6MG ONCE DAILY.
     Route: 048
     Dates: start: 20181120, end: 20181210

REACTIONS (1)
  - Neuroleptic malignant syndrome [Recovering/Resolving]
